FAERS Safety Report 21853586 (Version 1)
Quarter: 2023Q1

REPORT INFORMATION
  Report Type: Spontaneous
  Country: FR (occurrence: FR)
  Receive Date: 20230112
  Receipt Date: 20230112
  Transmission Date: 20230418
  Serious: Yes (Hospitalization)
  Sender: FDA-Public Use
  Company Number: FR-PFM-2023-00053

PATIENT
  Age: 75 Year
  Sex: Male
  Weight: 75.5 kg

DRUGS (12)
  1. DESLORATADINE [Suspect]
     Active Substance: DESLORATADINE
     Indication: Pruritus
     Dosage: UNK
     Route: 065
  2. NERISONE [Suspect]
     Active Substance: DIFLUCORTOLONE VALERATE
     Indication: Dermatitis atopic
     Dosage: UNK
     Route: 065
  3. CLOBETASOL PROPIONATE [Suspect]
     Active Substance: CLOBETASOL PROPIONATE
     Indication: Dermatitis atopic
     Dosage: UNK
     Route: 065
  4. SPIRIVA [Concomitant]
     Active Substance: TIOTROPIUM BROMIDE MONOHYDRATE
     Indication: Product used for unknown indication
     Dosage: 2 DOSAGE FORM (IN THE MORNING)
     Route: 065
  5. CROMADOSES [Concomitant]
     Indication: Product used for unknown indication
     Dosage: UNK
     Route: 065
  6. DIPROSONE [Concomitant]
     Active Substance: BETAMETHASONE DIPROPIONATE
     Indication: Product used for unknown indication
     Dosage: 1 DOSAGE FORM, QD (1 TUBE PER DAY)
     Route: 065
  7. AMLODIPINE BESYLATE [Concomitant]
     Active Substance: AMLODIPINE BESYLATE
     Indication: Product used for unknown indication
     Dosage: 10 MG (ON MORNING)
     Route: 065
  8. SERETIDE [Concomitant]
     Active Substance: FLUTICASONE PROPIONATE\SALMETEROL XINAFOATE
     Indication: Product used for unknown indication
     Dosage: 2 DOSAGE FORM (IN THE MORNING AND EVENING)
     Route: 065
  9. HYALURONATE SODIUM [Concomitant]
     Active Substance: HYALURONATE SODIUM
     Indication: Product used for unknown indication
     Dosage: UNK
     Route: 065
  10. ALBUTEROL [Concomitant]
     Active Substance: ALBUTEROL
     Indication: Product used for unknown indication
     Dosage: UNK, PRN (IF NECESSARY)
     Route: 065
  11. FORTZAAR COMP [Concomitant]
     Indication: Product used for unknown indication
     Dosage: 100/25 MG ON MORNING
     Route: 065
  12. SIMVASTATIN [Concomitant]
     Active Substance: SIMVASTATIN
     Indication: Product used for unknown indication
     Dosage: 10 MG, Q48H (EVERY 2 DAYS)
     Route: 065

REACTIONS (2)
  - Eczema [Recovered/Resolved]
  - Drug ineffective [Unknown]

NARRATIVE: CASE EVENT DATE: 20221101
